FAERS Safety Report 6214055-5 (Version None)
Quarter: 2009Q2

REPORT INFORMATION
  Report Type: 
  Country: None (occurrence: None)
  Receive Date: 20090604
  Receipt Date: 20090529
  Transmission Date: 20091009
  Serious: Yes (Hospitalization)
  Sender: FDA-Public Use
  Company Number: US-JNJFOC-20090600332

PATIENT
  Sex: Female
  Weight: 61.24 kg

DRUGS (6)
  1. TOPAMAX [Suspect]
     Indication: MIGRAINE PROPHYLAXIS
     Dosage: 50-75MG
     Route: 048
  2. TOPAMAX [Suspect]
     Route: 048
  3. RISPERDAL [Suspect]
     Route: 065
  4. RISPERDAL [Suspect]
     Indication: MIGRAINE
     Dosage: 0.5 TO 2MG
     Route: 065
  5. HYDROXYZINE [Concomitant]
     Indication: ARRHYTHMIA
  6. KLONOPIN [Concomitant]
     Indication: MIGRAINE

REACTIONS (2)
  - SINUS ARRHYTHMIA [None]
  - SINUS TACHYCARDIA [None]
